FAERS Safety Report 17243564 (Version 5)
Quarter: 2020Q1

REPORT INFORMATION
  Report Type: Report from Study
  Country: US (occurrence: US)
  Receive Date: 20200107
  Receipt Date: 20200331
  Transmission Date: 20200409
  Serious: Yes (Other)
  Sender: FDA-Public Use
  Company Number: NVSC2020US001864

PATIENT
  Age: 40 Year
  Sex: Male
  Weight: 90.7 kg

DRUGS (2)
  1. GILENYA [Suspect]
     Active Substance: FINGOLIMOD HYDROCHLORIDE
     Indication: MULTIPLE SCLEROSIS
     Dosage: 0.5 MG, QD
     Route: 048
     Dates: start: 20200103
  2. GABAPENTIN. [Concomitant]
     Active Substance: GABAPENTIN
     Indication: PRODUCT USED FOR UNKNOWN INDICATION
     Dosage: UNK
     Route: 065

REACTIONS (23)
  - Hand deformity [Unknown]
  - Drooling [Unknown]
  - Sneezing [Unknown]
  - Nasal congestion [Unknown]
  - Memory impairment [Unknown]
  - Insomnia [Unknown]
  - Multiple sclerosis relapse [Unknown]
  - Feeling abnormal [Unknown]
  - Hypoaesthesia [Unknown]
  - Trigger finger [Unknown]
  - Depression [Unknown]
  - Clumsiness [Unknown]
  - Headache [Unknown]
  - Dyspnoea [Recovered/Resolved]
  - Depressed mood [Unknown]
  - Genital herpes [Unknown]
  - Chest discomfort [Recovered/Resolved]
  - Cough [Unknown]
  - Sensation of foreign body [Unknown]
  - Nerve injury [Unknown]
  - Drug hypersensitivity [Unknown]
  - Paraesthesia [Unknown]
  - Herpes zoster [Recovering/Resolving]

NARRATIVE: CASE EVENT DATE: 20200103
